FAERS Safety Report 5291322-3 (Version None)
Quarter: 2007Q2

REPORT INFORMATION
  Report Type: 
  Country: None (occurrence: None)
  Receive Date: 20070403
  Receipt Date: 20070327
  Transmission Date: 20071010
  Serious: Yes (Life-Threatening, Hospitalization)
  Sender: FDA-Public Use
  Company Number: 2007-00852

PATIENT
  Age: 73 Year
  Sex: Female
  Weight: 65 kg

DRUGS (13)
  1. VELCADE [Suspect]
     Indication: MULTIPLE MYELOMA
     Dosage: 2.00 MG, INTRAVENOUS
     Route: 042
     Dates: start: 20070202, end: 20070209
  2. THALIDOMIDE(THALIDOMIDE) TAB;ET [Suspect]
     Dosage: 50.00  MG, ORAL
     Route: 048
     Dates: start: 20070202, end: 20070212
  3. MELPHALAN(MELPHALAN) VIAL [Suspect]
     Indication: MULTIPLE MYELOMA
     Dates: start: 20070202
  4. PREDNISONE [Suspect]
     Indication: MULTIPLE MYELOMA
     Dates: start: 20070202
  5. ALLOPURINOL [Concomitant]
  6. ACYCLOVIR [Concomitant]
  7. CIPROFLOXACIN [Concomitant]
  8. LAMIVUDINE [Concomitant]
  9. PLASIL (METOCLOPRAMIDE HYDROCHLORIDE) [Concomitant]
  10. SOTALOL HCL [Concomitant]
  11. OMEPRAZOLE [Concomitant]
  12. QUARK (RAMIPRIL) [Concomitant]
  13. ASPIRIN [Concomitant]

REACTIONS (9)
  - ACUTE PRERENAL FAILURE [None]
  - ANAEMIA [None]
  - BRADYCARDIA [None]
  - ELECTROCARDIOGRAM QT PROLONGED [None]
  - ELECTROCARDIOGRAM T WAVE INVERSION [None]
  - HYPOKALAEMIA [None]
  - HYPOTENSION [None]
  - NAUSEA [None]
  - VOMITING [None]
